FAERS Safety Report 9456919 (Version 1)
Quarter: 2013Q3

REPORT INFORMATION
  Report Type: Spontaneous
  Country: US (occurrence: US)
  Receive Date: 20130813
  Receipt Date: 20130813
  Transmission Date: 20140515
  Serious: No
  Sender: FDA-Public Use
  Company Number: US-009507513-1308USA002306

PATIENT
  Age: 68 Year
  Sex: Female

DRUGS (4)
  1. HYZAAR [Suspect]
     Dosage: UNK
     Route: 048
  2. THERAPY UNSPECIFIED [Suspect]
     Indication: BLOOD GLUCOSE
     Dosage: UNK
     Route: 048
     Dates: end: 201305
  3. GLYBURIDE [Concomitant]
  4. METFORMIN [Concomitant]

REACTIONS (1)
  - Blood glucose increased [Recovering/Resolving]
